FAERS Safety Report 5516959-5 (Version None)
Quarter: 2007Q4

REPORT INFORMATION
  Report Type: 
  Country: None (occurrence: None)
  Receive Date: 20071114
  Receipt Date: 20070615
  Transmission Date: 20080405
  Serious: No
  Sender: FDA-Public Use
  Company Number: A0656544A

PATIENT
  Age: 50 Year
  Sex: Male

DRUGS (1)
  1. COMMIT [Suspect]
     Dates: start: 20070610

REACTIONS (2)
  - FEELING ABNORMAL [None]
  - HANGOVER [None]
